FAERS Safety Report 9399421 (Version 3)
Quarter: 2013Q3

REPORT INFORMATION
  Report Type: Spontaneous
  Country: CA (occurrence: CA)
  Receive Date: 20130715
  Receipt Date: 20130823
  Transmission Date: 20140515
  Serious: Yes (Hospitalization)
  Sender: FDA-Public Use
  Company Number: US-GENZYME-FABR-1003345

PATIENT
  Age: 36 Year
  Sex: Male
  Weight: 49.9 kg

DRUGS (5)
  1. FABRAZYME [Suspect]
     Indication: FABRY^S DISEASE
     Dosage: 55 MG, Q2W
     Route: 042
  2. FABRAZYME [Suspect]
     Dosage: 55 MG, Q2W
     Route: 042
     Dates: start: 201211
  3. BENADRYL [Concomitant]
     Indication: PREMEDICATION
     Dosage: 25 MG, UNK
     Route: 065
  4. TYLENOL [Concomitant]
     Indication: PREMEDICATION
     Dosage: 500 MG, UNK
     Route: 065
  5. OXYCOCET [Concomitant]
     Indication: PRODUCT USED FOR UNKNOWN INDICATION
     Dosage: 2 TABLET, TID
     Route: 065

REACTIONS (1)
  - Cerebrovascular accident [Recovered/Resolved]
